FAERS Safety Report 8776681 (Version 1)
Quarter: 2012Q4

REPORT INFORMATION
  Report Type: 
  Country: JP (occurrence: JP)
  Receive Date: 20120910
  Receipt Date: 20120910
  Transmission Date: 20130627
  Serious: Yes (Other)
  Sender: FDA-Public Use
  Company Number: PHHY2012JP077818

PATIENT
  Age: 10 Year
  Sex: Male

DRUGS (2)
  1. TEGRETOL [Suspect]
     Route: 048
  2. TEGRETOL [Suspect]
     Dosage: 110 mg, daily
     Route: 048

REACTIONS (1)
  - Tubulointerstitial nephritis [Unknown]
